FAERS Safety Report 8545527 (Version 3)
Quarter: 2013Q2

REPORT INFORMATION
  Report Type: Spontaneous
  Country: CA (occurrence: CA)
  Receive Date: 20120503
  Receipt Date: 20130418
  Transmission Date: 20140414
  Serious: Yes (Other)
  Sender: FDA-Public Use
  Company Number: CA-ABBOTT-12P-028-0929933-00

PATIENT
  Age: 31 Year
  Sex: Female

DRUGS (1)
  1. PROMETRIUM [Suspect]
     Indication: PROPHYLAXIS OF ABORTION
     Dates: start: 2012

REACTIONS (2)
  - Blindness transient [Recovered/Resolved]
  - Off label use [Unknown]
